FAERS Safety Report 16402000 (Version 2)
Quarter: 2025Q1

REPORT INFORMATION
  Report Type: Spontaneous
  Country: CZ (occurrence: CZ)
  Receive Date: 20190607
  Receipt Date: 20250328
  Transmission Date: 20250408
  Serious: Yes (Hospitalization, Other)
  Sender: AUROBINDO
  Company Number: CZ-SA-2019SA064046

PATIENT
  Age: 36 Year
  Sex: Female

DRUGS (19)
  1. MELPHALAN [Suspect]
     Active Substance: MELPHALAN
     Indication: Hodgkin^s disease nodular sclerosis stage III
     Route: 065
     Dates: start: 201309
  2. MELPHALAN [Suspect]
     Active Substance: MELPHALAN
     Route: 065
     Dates: start: 201303
  3. CYTARABINE [Suspect]
     Active Substance: CYTARABINE
     Indication: Hodgkin^s disease nodular sclerosis stage III
     Route: 065
     Dates: start: 2012
  4. CYTARABINE [Suspect]
     Active Substance: CYTARABINE
     Route: 065
     Dates: start: 201303
  5. CYTARABINE [Suspect]
     Active Substance: CYTARABINE
     Route: 065
     Dates: start: 201309
  6. VINBLASTINE [Suspect]
     Active Substance: VINBLASTINE
     Indication: Hodgkin^s disease nodular sclerosis stage III
     Route: 065
     Dates: start: 201312
  7. VINBLASTINE [Suspect]
     Active Substance: VINBLASTINE
     Route: 065
     Dates: start: 201207
  8. CARMUSTINE [Suspect]
     Active Substance: CARMUSTINE
     Indication: Hodgkin^s disease nodular sclerosis stage III
     Route: 065
     Dates: start: 201309
  9. CARMUSTINE [Suspect]
     Active Substance: CARMUSTINE
     Route: 065
     Dates: start: 201303
  10. BLEOMYCIN [Suspect]
     Active Substance: BLEOMYCIN SULFATE
     Indication: Hodgkin^s disease nodular sclerosis stage III
     Route: 065
     Dates: start: 201207
  11. ADCETRIS [Suspect]
     Active Substance: BRENTUXIMAB VEDOTIN
     Indication: Hodgkin^s disease nodular sclerosis stage III
     Route: 065
  12. DEXAMETHASONE [Suspect]
     Active Substance: DEXAMETHASONE
     Indication: Hodgkin^s disease nodular sclerosis stage III
     Route: 065
  13. CISPLATIN [Suspect]
     Active Substance: CISPLATIN
     Indication: Hodgkin^s disease nodular sclerosis stage III
     Route: 065
  14. DACARBAZINE [Suspect]
     Active Substance: DACARBAZINE
     Indication: Hodgkin^s disease nodular sclerosis stage III
     Route: 065
     Dates: start: 201207
  15. LOMUSTINE [Suspect]
     Active Substance: LOMUSTINE
     Indication: Hodgkin^s disease nodular sclerosis stage III
     Route: 065
     Dates: start: 201312
  16. ETOPOSIDE [Suspect]
     Active Substance: ETOPOSIDE
     Indication: Hodgkin^s disease nodular sclerosis stage III
     Route: 065
  17. ETOPOSIDE [Suspect]
     Active Substance: ETOPOSIDE
     Route: 065
     Dates: start: 201309
  18. ETOPOSIDE [Suspect]
     Active Substance: ETOPOSIDE
     Route: 065
     Dates: start: 201312
  19. DOXORUBICIN [Suspect]
     Active Substance: DOXORUBICIN
     Indication: Hodgkin^s disease nodular sclerosis stage III
     Route: 065
     Dates: start: 201207

REACTIONS (3)
  - Hodgkin^s disease nodular sclerosis stage III [Recovered/Resolved with Sequelae]
  - Disease progression [Recovered/Resolved with Sequelae]
  - Therapeutic response decreased [Recovered/Resolved with Sequelae]
